FAERS Safety Report 5264656-6 (Version None)
Quarter: 2007Q1

REPORT INFORMATION
  Report Type: 
  Country: None (occurrence: None)
  Receive Date: 20070314
  Receipt Date: 20070307
  Transmission Date: 20070707
  Serious: Yes (Other)
  Sender: FDA-Public Use
  Company Number: US-JNJFOC-20070302272

PATIENT
  Sex: Male
  Weight: 64.41 kg

DRUGS (2)
  1. FENTANYL TRANSDERMAL SYSTEM [Suspect]
     Indication: PAIN
     Route: 062
  2. LIPITOR [Concomitant]
     Indication: BLOOD CHOLESTEROL INCREASED
     Route: 048

REACTIONS (5)
  - ASTHENIA [None]
  - CHILLS [None]
  - FEELING COLD [None]
  - OXYGEN SATURATION DECREASED [None]
  - WRONG TECHNIQUE IN DRUG USAGE PROCESS [None]
